FAERS Safety Report 9668944 (Version 1)
Quarter: 2013Q4

REPORT INFORMATION
  Report Type: Spontaneous
  Country: US (occurrence: None)
  Receive Date: 20131104
  Receipt Date: 20131104
  Transmission Date: 20140711
  Serious: Yes (Disabling)
  Sender: FDA-Public Use
  Company Number: None

PATIENT
  Age: 60 Year
  Sex: Male
  Weight: 70.31 kg

DRUGS (1)
  1. ALBUTEROL SULFATE [Suspect]
     Indication: DYSPNOEA
     Dosage: ONE VIAL, AS NEEDED, INHALATION
     Route: 055
     Dates: start: 20131010, end: 20131029

REACTIONS (1)
  - Influenza like illness [None]
